FAERS Safety Report 6951647-X (Version None)
Quarter: 2010Q3

REPORT INFORMATION
  Report Type: 
  Country: None (occurrence: None)
  Receive Date: 20100828
  Receipt Date: 20100422
  Transmission Date: 20110219
  Serious: No
  Sender: FDA-Public Use
  Company Number: US-ABBOTT-10P-163-0636568-00

PATIENT
  Sex: Female
  Weight: 72.64 kg

DRUGS (12)
  1. NIASPAN [Suspect]
     Indication: BLOOD CHOLESTEROL INCREASED
     Dates: start: 20100324
  2. GEMFIBROZIL [Concomitant]
     Indication: PRODUCT USED FOR UNKNOWN INDICATION
  3. FISH OIL [Concomitant]
     Indication: PRODUCT USED FOR UNKNOWN INDICATION
  4. MULTI-VITAMIN [Concomitant]
     Indication: PRODUCT USED FOR UNKNOWN INDICATION
  5. VITAMIN D3 [Concomitant]
     Indication: VITAMIN SUPPLEMENTATION
  6. ASCORBIC ACID [Concomitant]
     Indication: PRODUCT USED FOR UNKNOWN INDICATION
  7. HYDROCHLOROTHIAZIDE [Concomitant]
     Indication: HYPERTENSION
  8. PAXIL [Concomitant]
     Indication: DEPRESSION
  9. SYNTHROID [Concomitant]
     Indication: THYROIDECTOMY
  10. SYNTHROID [Concomitant]
     Indication: THYROID CANCER
  11. LISINOPRIL [Concomitant]
     Indication: HYPERTENSION
  12. OMEPRAZOLE [Concomitant]
     Indication: GASTRIC ULCER

REACTIONS (1)
  - FLUSHING [None]
